FAERS Safety Report 6562528-8 (Version None)
Quarter: 2010Q1

REPORT INFORMATION
  Report Type: 
  Country: None (occurrence: None)
  Receive Date: 20100130
  Receipt Date: 20091201
  Transmission Date: 20100710
  Serious: No
  Sender: FDA-Public Use
  Company Number: US-ABBOTT-09P-163-0608509-00

PATIENT
  Sex: Male
  Weight: 44.038 kg

DRUGS (2)
  1. HUMIRA [Suspect]
     Indication: CROHN'S DISEASE
     Route: 058
     Dates: start: 20090801, end: 20091104
  2. PREDNISONE [Concomitant]
     Indication: DRUG USE FOR UNKNOWN INDICATION

REACTIONS (6)
  - HYPOAESTHESIA [None]
  - HYPOAESTHESIA FACIAL [None]
  - NASOPHARYNGITIS [None]
  - PARAESTHESIA [None]
  - RESPIRATORY TRACT CONGESTION [None]
  - SINUS CONGESTION [None]
